FAERS Safety Report 20669875 (Version 1)
Quarter: 2022Q2

REPORT INFORMATION
  Report Type: Other
  Country: PR (occurrence: None)
  Receive Date: 20220404
  Receipt Date: 20220404
  Transmission Date: 20220721
  Serious: No
  Sender: FDA-Public Use
  Company Number: PR-BIOVITRUM-2019PR1259

PATIENT
  Age: 4 Year
  Sex: Female

DRUGS (2)
  1. ORFADIN [Suspect]
     Active Substance: NITISINONE
     Indication: Tyrosinaemia
     Route: 048
     Dates: start: 20150129
  2. ORFADIN [Suspect]
     Active Substance: NITISINONE
     Route: 048
     Dates: start: 20151217

REACTIONS (1)
  - Influenza [Recovered/Resolved]

NARRATIVE: CASE EVENT DATE: 20190505
